FAERS Safety Report 6508957-X (Version None)
Quarter: 2009Q4

REPORT INFORMATION
  Report Type: 
  Country: None (occurrence: None)
  Receive Date: 20091221
  Receipt Date: 20090914
  Transmission Date: 20100525
  Serious: No
  Sender: FDA-Public Use
  Company Number: US-ASTRAZENECA-2009SE12946

PATIENT
  Age: 20087 Day
  Sex: Female
  Weight: 62.6 kg

DRUGS (1)
  1. CRESTOR [Suspect]
     Route: 048
     Dates: start: 20090810

REACTIONS (2)
  - LIMB INJURY [None]
  - PAIN IN EXTREMITY [None]
